FAERS Safety Report 4627301-6 (Version None)
Quarter: 2005Q2

REPORT INFORMATION
  Report Type: 
  Country: None (occurrence: None)
  Receive Date: 20050405
  Receipt Date: 20050401
  Transmission Date: 20051028
  Serious: No
  Sender: FDA-Public Use
  Company Number: US-BOEHRINGER INGELHEIM PHARMACEUTICALS, INC.-2005-BP-05433RO

PATIENT
  Age: 2 Month
  Sex: Female
  Weight: 5.6 kg

DRUGS (3)
  1. METOCLOPRAMIDE [Suspect]
     Indication: GASTROOESOPHAGEAL REFLUX DISEASE
     Dosage: 37.5 MG Q6H (DOSING ERROR)
     Route: 048
  2. METOCLOPRAMIDE [Suspect]
     Dosage: 7.5 MG Q6H (CORRECTED DOSE)
     Route: 048
  3. RANITIDINE [Concomitant]
     Indication: GASTROOESOPHAGEAL REFLUX DISEASE
     Dosage: 2.5 ML, BID,  OF 75 MG/5ML SYRUP
     Route: 048

REACTIONS (5)
  - INSOMNIA [None]
  - IRRITABILITY [None]
  - MEDICATION ERROR [None]
  - REFUSAL OF TREATMENT BY RELATIVE [None]
  - TARDIVE DYSKINESIA [None]
